FAERS Safety Report 5407967-3 (Version None)
Quarter: 2007Q3

REPORT INFORMATION
  Report Type: 
  Country: None (occurrence: None)
  Receive Date: 20070803
  Receipt Date: 20070720
  Transmission Date: 20080115
  Serious: Yes (Hospitalization)
  Sender: FDA-Public Use
  Company Number: 2007001343

PATIENT
  Age: 77 Year
  Sex: Male

DRUGS (7)
  1. TARCEVA [Suspect]
     Indication: NON-SMALL CELL LUNG CANCER
     Dosage: 100 MQ (QD),ORAL
     Route: 048
     Dates: start: 20070630, end: 20070708
  2. SENNA C (SENNA) [Concomitant]
  3. DIGOXIN [Concomitant]
  4. CARDIZEM [Concomitant]
  5. ATENOLOL [Concomitant]
  6. COMPAZINE [Concomitant]
  7. COUMADIN [Concomitant]

REACTIONS (6)
  - DIARRHOEA [None]
  - INTESTINAL OBSTRUCTION [None]
  - PNEUMONIA [None]
  - RASH PUSTULAR [None]
  - THIRST [None]
  - VOMITING [None]
